FAERS Safety Report 6829335-X (Version None)
Quarter: 2010Q3

REPORT INFORMATION
  Report Type: 
  Country: None (occurrence: None)
  Receive Date: 20100709
  Receipt Date: 20070301
  Transmission Date: 20110219
  Serious: No
  Sender: FDA-Public Use
  Company Number: US-PFIZER INC-2007016791

PATIENT
  Sex: Female
  Weight: 39.46 kg

DRUGS (9)
  1. CHANTIX [Suspect]
     Indication: SMOKING CESSATION THERAPY
     Dates: start: 20070216
  2. ALBUTEROL [Concomitant]
  3. PULMICORT [Concomitant]
  4. ATROVENT [Concomitant]
  5. PREMARIN [Concomitant]
  6. MONTELUKAST SODIUM [Concomitant]
  7. DRUG, UNSPECIFIED [Concomitant]
     Indication: ARTHRITIS
  8. MAXALT [Concomitant]
     Indication: SINUS HEADACHE
  9. ANALGESICS [Concomitant]
     Indication: RIB FRACTURE

REACTIONS (1)
  - INFLUENZA LIKE ILLNESS [None]
